FAERS Safety Report 5059764-9 (Version None)
Quarter: 2006Q3

REPORT INFORMATION
  Report Type: 
  Country: None (occurrence: None)
  Receive Date: 20060724
  Receipt Date: 20060718
  Transmission Date: 20061208
  Serious: Yes (Death)
  Sender: FDA-Public Use
  Company Number: CA-JNJFOC-20060604185

PATIENT
  Sex: Female
  Weight: 60 kg

DRUGS (4)
  1. REMINYL ER [Suspect]
     Indication: DEMENTIA
     Route: 048
  2. ANTI-HYPERTENSIVE [Concomitant]
  3. CHOLESTEROL-LOWERING [Concomitant]
  4. ASPIRIN [Concomitant]

REACTIONS (1)
  - SUDDEN DEATH [None]
